FAERS Safety Report 17105688 (Version 1)
Quarter: 2019Q4

REPORT INFORMATION
  Report Type: Spontaneous
  Country: US (occurrence: US)
  Receive Date: 20191203
  Receipt Date: 20191203
  Transmission Date: 20200122
  Serious: Yes (Other)
  Sender: FDA-Public Use
  Company Number: US-TEVA-2019-US-1147757

PATIENT

DRUGS (1)
  1. AMOXICILLIN CLAVUNATE TEVA [Suspect]
     Active Substance: AMOXICILLIN\CLAVULANIC ACID
     Indication: PROPHYLAXIS
     Dosage: AMOXICILLIN CLAVUNATE 875-125 TABLETS TWICE A DAY
     Route: 065

REACTIONS (2)
  - Coeliac disease [Unknown]
  - Nervous system disorder [Unknown]
